FAERS Safety Report 4925565-2 (Version None)
Quarter: 2006Q1

REPORT INFORMATION
  Report Type: 
  Country: None (occurrence: None)
  Receive Date: 20060228
  Receipt Date: 20041208
  Transmission Date: 20060701
  Serious: No
  Sender: FDA-Public Use
  Company Number: US-GLAXOSMITHKLINE-A0536644A

PATIENT
  Sex: Female

DRUGS (5)
  1. LAMICTAL [Suspect]
     Indication: BIPOLAR DISORDER
     Dosage: 100MG PER DAY
     Route: 048
     Dates: start: 20041101, end: 20041201
  2. EFFEXOR [Concomitant]
  3. VICODIN [Concomitant]
  4. SYNTHROID [Concomitant]
  5. XANAX [Concomitant]

REACTIONS (4)
  - CHEILITIS [None]
  - HYPOAESTHESIA ORAL [None]
  - RASH [None]
  - SWELLING FACE [None]
